FAERS Safety Report 4497049-X (Version None)
Quarter: 2004Q4

REPORT INFORMATION
  Report Type: 
  Country: None (occurrence: None)
  Receive Date: 20041108
  Receipt Date: 20040928
  Transmission Date: 20050328
  Serious: Yes (Hospitalization, Disabling, Other)
  Sender: FDA-Public Use
  Company Number: USA040977332

PATIENT
  Age: 62 Year
  Sex: Female
  Weight: 155 kg

DRUGS (2)
  1. PROZAC [Suspect]
     Indication: DEPRESSION
     Dosage: 40 MG
     Dates: start: 19890901
  2. MINIPRESS [Concomitant]

REACTIONS (6)
  - CEREBROVASCULAR ACCIDENT [None]
  - DISABILITY [None]
  - HIP ARTHROPLASTY [None]
  - HYPERTENSION [None]
  - ROAD TRAFFIC ACCIDENT [None]
  - WEIGHT INCREASED [None]
